FAERS Safety Report 6442768-9 (Version None)
Quarter: 2009Q4

REPORT INFORMATION
  Report Type: 
  Country: None (occurrence: None)
  Receive Date: 20091117
  Receipt Date: 20091109
  Transmission Date: 20100525
  Serious: Yes (Death)
  Sender: FDA-Public Use
  Company Number: PHEH2009US09805

PATIENT
  Sex: Female

DRUGS (5)
  1. TOBI [Suspect]
     Indication: LUNG INFECTION PSEUDOMONAL
     Dosage: 300 MG, Q12H
     Dates: start: 20080707, end: 20090112
  2. TOBI [Suspect]
     Indication: BRONCHIECTASIS
  3. ZITHROMAX [Concomitant]
     Dosage: 250 MG, QD
     Route: 048
     Dates: end: 20090301
  4. FORADIL                                 /DEN/ [Concomitant]
     Dosage: UNK, ONE INHALATION TWICE DAILY
     Dates: end: 20090301
  5. SPIRIVA [Concomitant]
     Dosage: UNK, ONE PUFF DAILY

REACTIONS (7)
  - BRONCHIECTASIS [None]
  - CONCOMITANT DISEASE PROGRESSION [None]
  - DISEASE PROGRESSION [None]
  - EMPHYSEMA [None]
  - GASTROOESOPHAGEAL REFLUX DISEASE [None]
  - LUNG INFECTION PSEUDOMONAL [None]
  - RESPIRATORY FAILURE [None]
